FAERS Safety Report 8070624-1 (Version None)
Quarter: 2012Q1

REPORT INFORMATION
  Report Type: 
  Country: None (occurrence: None)
  Receive Date: 20120125
  Receipt Date: 20120117
  Transmission Date: 20120608
  Serious: Yes (Hospitalization)
  Sender: FDA-Public Use
  Company Number: PHHY2011GB94871

PATIENT
  Age: 53 Year
  Sex: Female

DRUGS (7)
  1. AMLODIPINE [Concomitant]
  2. BENDROFLUAZIDE [Concomitant]
  3. ANGITIL - SLOW RELEASE [Concomitant]
  4. BISOPROLOL [Concomitant]
  5. DOXAZOSIN [Concomitant]
  6. CETIRIZINE [Suspect]
     Indication: RHINITIS ALLERGIC
     Dosage: 10 MG, QD
     Dates: start: 20110801
  7. TEKTURNA [Suspect]
     Indication: HYPERTENSION
     Dosage: 300 MG, QD
     Route: 048

REACTIONS (2)
  - ANGIOEDEMA [None]
  - RASH GENERALISED [None]
